FAERS Safety Report 7082499 (Version 7)
Quarter: 2016Q3

REPORT INFORMATION
  Report Type: Report from Study
  Country: PH (occurrence: PH)
  Receive Date: 20090814
  Receipt Date: 20160831
  Transmission Date: 20161109
  Serious: Yes (Hospitalization, Other)
  Sender: FDA-Public Use
  Company Number: PH-PFIZER INC-2008051575

PATIENT
  Age: 65 Year
  Sex: Female
  Weight: 60 kg

DRUGS (11)
  1. NORVASC [Concomitant]
     Active Substance: AMLODIPINE BESYLATE
     Dosage: 5 MG 1X/DAY
     Route: 048
     Dates: start: 20050106
  2. PARACETAMOL [Concomitant]
     Active Substance: ACETAMINOPHEN
     Dosage: 500 MG, UNK
     Route: 048
     Dates: start: 20080429
  3. TRAMADOL. [Concomitant]
     Active Substance: TRAMADOL
     Dosage: 50 MG, 3X/DAY
     Route: 048
     Dates: start: 20071026
  4. NEXIUM [Concomitant]
     Active Substance: ESOMEPRAZOLE MAGNESIUM
     Indication: PROPHYLAXIS
     Dosage: 40 MG, 1X/DAY
     Route: 048
     Dates: start: 20080305, end: 20080618
  5. CALTRATE [Concomitant]
     Active Substance: CALCIUM CARBONATE
     Dosage: UNK UNK, 2X/DAY
     Route: 048
     Dates: end: 20080603
  6. IBUPROFEN. [Suspect]
     Active Substance: IBUPROFEN
     Indication: RHEUMATOID ARTHRITIS
     Dosage: UNK
     Route: 048
     Dates: start: 20080305, end: 20080618
  7. PREDNISONE. [Concomitant]
     Active Substance: PREDNISONE
     Dosage: 2.5 MG, DAILY
     Route: 048
     Dates: start: 20071205, end: 20081028
  8. OPSTRES [Concomitant]
     Dosage: UNK
     Route: 048
     Dates: start: 20080520
  9. MOTILIUM ^BYK GULDEN^ [Concomitant]
     Indication: DIARRHOEA
     Dosage: 3X/DAY
     Route: 048
     Dates: start: 20080603, end: 20081028
  10. METHOTREXATE. [Concomitant]
     Active Substance: METHOTREXATE
     Dosage: 10 MG, UNK
     Route: 048
     Dates: start: 20071109
  11. PANKREOFLAT [Concomitant]
     Indication: DIARRHOEA
     Dosage: 3X/DAY
     Route: 048
     Dates: start: 20080603

REACTIONS (6)
  - Oesophagitis [Recovered/Resolved]
  - Colitis [Recovered/Resolved]
  - Helicobacter gastritis [Recovered/Resolved]
  - Anaemia [Recovered/Resolved]
  - Gastric ulcer [Recovered/Resolved]
  - Chronic gastritis [Recovered/Resolved]

NARRATIVE: CASE EVENT DATE: 20080524
